FAERS Safety Report 7353567 (Version 17)
Quarter: 2014Q2

REPORT INFORMATION
  Report Type: Report from Study
  Country: CA (occurrence: CA)
  Receive Date: 20100413
  Receipt Date: 20140506
  Transmission Date: 20141212
  Serious: Yes (Other)
  Sender: FDA-Public Use
  Company Number: PHHY2010CA07391

PATIENT
  Age: 68 Year
  Sex: Male

DRUGS (4)
  1. SANDOSTATIN LAR [Suspect]
     Indication: ACROMEGALY
     Dosage: 20 MG, QMO
     Route: 030
     Dates: start: 20040105
  2. SANDOSTATIN LAR [Suspect]
     Dosage: 20 MG, EVERY 4 WEEKS
     Route: 030
  3. SANDOSTATIN LAR [Suspect]
     Dosage: 20 MG, EVERY 28 DAYS
     Route: 030
  4. SANDOSTATIN LAR [Suspect]
     Dosage: 20 MG, EVERY 4 WEEKS
     Route: 030

REACTIONS (18)
  - Sialoadenitis [Unknown]
  - Subcutaneous abscess [Unknown]
  - Haematoma [Unknown]
  - Weight decreased [Unknown]
  - Lower respiratory tract infection [Unknown]
  - Diabetes mellitus [Unknown]
  - Pneumonia [Unknown]
  - Cough [Unknown]
  - Heart rate increased [Unknown]
  - Aortic aneurysm [Unknown]
  - Toothache [Unknown]
  - Nasopharyngitis [Unknown]
  - Blood pressure systolic increased [Unknown]
  - Malaise [Unknown]
  - Infection [Unknown]
  - Sluggishness [Unknown]
  - Heart rate irregular [Unknown]
  - Fatigue [Unknown]
